FAERS Safety Report 9399458 (Version 1)
Quarter: 2013Q3

REPORT INFORMATION
  Report Type: Spontaneous
  Country: DE (occurrence: DE)
  Receive Date: 20130715
  Receipt Date: 20130715
  Transmission Date: 20140515
  Serious: Yes (Other)
  Sender: FDA-Public Use
  Company Number: DE-JNJFOC-20130703891

PATIENT
  Age: 91 Year
  Sex: Female
  Weight: 57 kg

DRUGS (20)
  1. XARELTO [Suspect]
     Indication: CEREBROVASCULAR ACCIDENT PROPHYLAXIS
     Route: 048
     Dates: start: 20130424, end: 20130429
  2. XARELTO [Suspect]
     Indication: ATRIAL FIBRILLATION
     Route: 048
     Dates: start: 20130424, end: 20130429
  3. SIMVASTATIN [Concomitant]
     Route: 048
  4. DOXAZOSIN [Concomitant]
     Route: 048
  5. NITROLINGUAL [Concomitant]
     Route: 065
  6. MARCUMAR [Concomitant]
     Route: 065
  7. GINKGO BILOBA EXTRACT [Concomitant]
     Route: 065
  8. CYANOCOBALAMIN W/FOLIC ACID/PYRIDOXINE [Concomitant]
     Route: 065
  9. CETEBE [Concomitant]
     Route: 048
  10. MAGIUM K [Concomitant]
     Route: 048
  11. ZINKOROTAT [Concomitant]
     Route: 048
  12. CRANBERRY EXTRACT [Concomitant]
     Route: 065
  13. VIGANTOLETTEN [Concomitant]
     Route: 048
  14. DECORTIN H [Concomitant]
     Route: 048
     Dates: start: 20120430
  15. NOVALGIN [Concomitant]
     Route: 048
  16. DIGIMERCK [Concomitant]
     Route: 048
  17. BISOPROLOL [Concomitant]
     Route: 065
  18. APROVEL [Concomitant]
     Route: 048
  19. TORASEMIDE [Concomitant]
     Route: 048
  20. ALDACTONE [Concomitant]
     Route: 047

REACTIONS (2)
  - Polyarthritis [Recovered/Resolved]
  - Blood pressure increased [Recovered/Resolved]
